FAERS Safety Report 5396003-3 (Version None)
Quarter: 2007Q3

REPORT INFORMATION
  Report Type: 
  Country: None (occurrence: None)
  Receive Date: 20070718
  Receipt Date: 20061017
  Transmission Date: 20080115
  Serious: Yes (Other)
  Sender: FDA-Public Use
  Company Number: 2006127627

PATIENT
  Age: 82 Year
  Sex: Female
  Weight: 58.9676 kg

DRUGS (16)
  1. CELEBREX [Suspect]
     Indication: ARTHRITIS
     Dosage: 200 MG (200 MG, 1 IN 1 D)
     Dates: start: 20061007, end: 20061017
  2. CELEBREX [Suspect]
     Indication: EXOSTOSIS
     Dosage: 200 MG (200 MG, 1 IN 1 D)
     Dates: start: 20061007, end: 20061017
  3. ATACAND [Concomitant]
  4. LASIX [Concomitant]
  5. HYDRALAZINE HCL [Concomitant]
  6. ISOSORBIDE (ISOSORBIDE) [Concomitant]
  7. SPIRONOLACTONE [Concomitant]
  8. NITROGLYCERIN [Concomitant]
  9. LEVOXYL [Concomitant]
  10. DIGOXIN [Concomitant]
  11. GABAPENTIN [Concomitant]
  12. ARICEPT [Concomitant]
  13. LEXAPRO [Concomitant]
  14. DETROL [Concomitant]
  15. FOLIC ACID [Concomitant]
  16. ACETYLSALICYLIC ACID SRT [Concomitant]

REACTIONS (1)
  - BLOOD PRESSURE INCREASED [None]
